FAERS Safety Report 9646227 (Version 2)
Quarter: 2013Q4

REPORT INFORMATION
  Report Type: Spontaneous
  Country: US (occurrence: None)
  Receive Date: 20131024
  Receipt Date: 20131101
  Transmission Date: 20140711
  Serious: Yes (Other)
  Sender: FDA-Public Use
  Company Number: 2013100097

PATIENT
  Sex: Female

DRUGS (1)
  1. NABILONE [Suspect]
     Dosage: 4 MG ( 2MG, 2 IN 1 D), ORAL
     Route: 048

REACTIONS (2)
  - Dysphagia [None]
  - Lower respiratory tract infection [None]
